FAERS Safety Report 7249846-5 (Version None)
Quarter: 2011Q1

REPORT INFORMATION
  Report Type: 
  Country: None (occurrence: None)
  Receive Date: 20110128
  Receipt Date: 20100528
  Transmission Date: 20110831
  Serious: No
  Sender: FDA-Public Use
  Company Number: A0865051A

PATIENT
  Sex: Female

DRUGS (3)
  1. WELLBUTRIN XL [Suspect]
     Indication: DEPRESSION
     Dosage: 300MG UNKNOWN
     Route: 065
  2. NO CONCURRENT MEDICATION [Concomitant]
  3. APLENZIN [Suspect]
     Indication: DEPRESSION
     Dosage: 522MG UNKNOWN
     Route: 048

REACTIONS (1)
  - SKIN HYPERPIGMENTATION [None]
